FAERS Safety Report 20785161 (Version 1)
Quarter: 2022Q2

REPORT INFORMATION
  Report Type: Spontaneous
  Country: US (occurrence: US)
  Receive Date: 20220504
  Receipt Date: 20220504
  Transmission Date: 20220720
  Serious: No
  Sender: FDA-Public Use
  Company Number: US-Blueprint Medicines Corporation-39

PATIENT
  Sex: Female

DRUGS (2)
  1. AYVAKIT [Suspect]
     Active Substance: AVAPRITINIB
     Indication: Malignant mast cell neoplasm
     Dosage: 25MG DAILY
     Route: 048
     Dates: start: 20210720
  2. AYVAKIT [Suspect]
     Active Substance: AVAPRITINIB

REACTIONS (3)
  - Swelling face [Unknown]
  - Peripheral swelling [Unknown]
  - Product dose omission issue [Unknown]
